FAERS Safety Report 9478739 (Version 3)
Quarter: 2013Q3

REPORT INFORMATION
  Report Type: Spontaneous
  Country: VE (occurrence: VE)
  Receive Date: 20130827
  Receipt Date: 20130916
  Transmission Date: 20140515
  Serious: Yes (Other)
  Sender: FDA-Public Use
  Company Number: VE-009507513-1308VEN011440

PATIENT
  Age: 62 Year
  Sex: Male

DRUGS (2)
  1. JANUMET [Suspect]
     Indication: TYPE 2 DIABETES MELLITUS
     Dosage: 50/850 MG TOTAL DAILY DOSE
     Route: 048
     Dates: start: 2012, end: 20130822
  2. LANTUS [Concomitant]
     Indication: TYPE 2 DIABETES MELLITUS
     Dosage: UNK

REACTIONS (2)
  - Pancreatic carcinoma [Unknown]
  - Inappropriate schedule of drug administration [Unknown]
